FAERS Safety Report 7776615-X (Version None)
Quarter: 2011Q3

REPORT INFORMATION
  Report Type: 
  Country: None (occurrence: None)
  Receive Date: 20110922
  Receipt Date: 20110922
  Transmission Date: 20111222
  Serious: No
  Sender: FDA-Public Use
  Company Number: None

PATIENT
  Age: 32 Year
  Sex: Male
  Weight: 85.5 kg

DRUGS (1)
  1. DAPTOMYCIN [Suspect]
     Indication: BACTERAEMIA
     Dosage: 500 MG EVERY DAY IV
     Route: 042
     Dates: start: 20110502, end: 20110503

REACTIONS (5)
  - URTICARIA [None]
  - RASH GENERALISED [None]
  - RASH MORBILLIFORM [None]
  - EOSINOPHILIA [None]
  - PRURITUS [None]
